FAERS Safety Report 24410983 (Version 1)
Quarter: 2024Q4

REPORT INFORMATION
  Report Type: Report from Study
  Country: CA (occurrence: CA)
  Receive Date: 20241008
  Receipt Date: 20241008
  Transmission Date: 20250114
  Serious: No
  Sender: Unknown Manufacturer
  Company Number: CA-MIRUM PHARMACEUTICALS, INC.-CA-MIR-24-00879

PATIENT

DRUGS (1)
  1. LIVMARLI [Suspect]
     Active Substance: MARALIXIBAT CHLORIDE
     Indication: Alagille syndrome
     Dosage: 0.45 MILLILITER, QD (LIVMARLI USED VIA NGT)NASOGASTRIC TUBE
     Route: 050
     Dates: start: 20231209

REACTIONS (5)
  - Bilirubin conjugated increased [Unknown]
  - Bile acids increased [Unknown]
  - Transplant evaluation [Unknown]
  - Liver disorder [Unknown]
  - Off label use [Unknown]
